FAERS Safety Report 5453913-6 (Version None)
Quarter: 2007Q3

REPORT INFORMATION
  Report Type: 
  Country: None (occurrence: None)
  Receive Date: 20070917
  Receipt Date: 20070906
  Transmission Date: 20080115
  Serious: Yes (Other)
  Sender: FDA-Public Use
  Company Number: BR-SANOFI-SYNTHELABO-A01200707078

PATIENT
  Sex: Female

DRUGS (6)
  1. DEXAMETHASONE 0.5MG TAB [Concomitant]
     Dosage: 10 MG
     Route: 042
  2. ANZEMET [Concomitant]
     Dosage: 100 MG
  3. LEUCOVORIN [Concomitant]
     Route: 042
     Dates: start: 20070503
  4. FLUOROURACIL INJ [Concomitant]
     Route: 040
     Dates: start: 20070503
  5. FLUOROURACIL INJ [Concomitant]
     Route: 041
     Dates: start: 20070503
  6. ELOXATIN [Suspect]
     Indication: COLORECTAL CANCER
     Route: 042
     Dates: start: 20070628, end: 20070628

REACTIONS (6)
  - COUGH [None]
  - ERYTHEMA [None]
  - EYE PRURITUS [None]
  - LARYNGOSPASM [None]
  - OCULAR HYPERAEMIA [None]
  - PRURITUS [None]
